FAERS Safety Report 10976070 (Version 2)
Quarter: 2015Q2

REPORT INFORMATION
  Report Type: Spontaneous
  Country: US (occurrence: US)
  Receive Date: 20150401
  Receipt Date: 20150501
  Transmission Date: 20150821
  Serious: No
  Sender: FDA-Public Use
  Company Number: US-PFIZER INC-2015109302

PATIENT

DRUGS (1)
  1. PREMARIN [Suspect]
     Active Substance: ESTROGENS, CONJUGATED
     Dosage: UNK UNK, AS NEEDED (THREE TIMES WEEKLY AS NEEDED)
     Route: 067

REACTIONS (1)
  - Vulvovaginal mycotic infection [Recovered/Resolved]
